FAERS Safety Report 7123687-1 (Version None)
Quarter: 2010Q4

REPORT INFORMATION
  Report Type: 
  Country: None (occurrence: None)
  Receive Date: 20101125
  Receipt Date: 20101110
  Transmission Date: 20110411
  Serious: Yes (Hospitalization, Other)
  Sender: FDA-Public Use
  Company Number: PHHY2010TW74994

PATIENT
  Sex: Female
  Weight: 53 kg

DRUGS (1)
  1. ZOLEDRONATE T29581++BM [Suspect]
     Indication: METASTASES TO BONE
     Dosage: 4 MG
     Route: 042
     Dates: start: 20100916, end: 20101015

REACTIONS (15)
  - AORTIC DISORDER [None]
  - ASPARTATE AMINOTRANSFERASE INCREASED [None]
  - C-REACTIVE PROTEIN INCREASED [None]
  - COUGH [None]
  - EXOSTOSIS [None]
  - HYPERGLYCAEMIA [None]
  - HYPERTENSION [None]
  - INTERVERTEBRAL DISC SPACE NARROWING [None]
  - LUNG NEOPLASM [None]
  - LYMPHOCYTE COUNT DECREASED [None]
  - METASTASES TO LIVER [None]
  - METASTASES TO LUNG [None]
  - PYREXIA [None]
  - SPINAL DISORDER [None]
  - VOMITING [None]
